FAERS Safety Report 8039956-7 (Version None)
Quarter: 2012Q1

REPORT INFORMATION
  Report Type: 
  Country: None (occurrence: None)
  Receive Date: 20120111
  Receipt Date: 20111220
  Transmission Date: 20120608
  Serious: No
  Sender: FDA-Public Use
  Company Number: US-AMGEN-USASP2011068005

PATIENT
  Age: 49 Year
  Sex: Female

DRUGS (3)
  1. PLAQUENIL [Concomitant]
     Dosage: 1 MG, QD
     Dates: start: 20110619
  2. ENBREL [Suspect]
     Indication: RHEUMATOID ARTHRITIS
     Dosage: 50 MG, QWK
     Dates: start: 20110801, end: 20111205
  3. TREXALL [Concomitant]
     Dosage: 1 MG, QWK
     Dates: start: 20100601

REACTIONS (2)
  - PAIN IN EXTREMITY [None]
  - SINUSITIS [None]
